FAERS Safety Report 23350042 (Version 1)
Quarter: 2023Q4

REPORT INFORMATION
  Report Type: Spontaneous
  Country: CA (occurrence: CA)
  Receive Date: 20231229
  Receipt Date: 20231229
  Transmission Date: 20240110
  Serious: Yes (Hospitalization)
  Sender: FDA-Public Use
  Company Number: None

PATIENT
  Age: 49 Year
  Sex: Female
  Weight: 98 kg

DRUGS (19)
  1. DOCETAXEL [Suspect]
     Active Substance: DOCETAXEL\DOCETAXEL ANHYDROUS
     Indication: Breast neoplasm
     Route: 065
  2. ASPIRIN [Concomitant]
     Active Substance: ASPIRIN
     Route: 065
  3. AMITRIPTYLINE [Concomitant]
     Active Substance: AMITRIPTYLINE
  4. AMLODIPINE [Concomitant]
     Active Substance: AMLODIPINE BESYLATE
     Route: 065
  5. ATORVASTATIN [Concomitant]
     Active Substance: ATORVASTATIN
     Route: 065
  6. DEXAMETHASONE [Concomitant]
     Active Substance: DEXAMETHASONE
     Route: 065
  7. FORMOTEROL [Concomitant]
     Active Substance: FORMOTEROL
     Dosage: FOR INHALATION
  8. LEVOTHYROXINE [Concomitant]
     Active Substance: LEVOTHYROXINE
     Route: 065
  9. LORAZEPAM [Concomitant]
     Active Substance: LORAZEPAM
     Route: 065
  10. METOCLOPRAMIDE [Concomitant]
     Active Substance: METOCLOPRAMIDE
  11. NOVO-RAPID [Concomitant]
  12. NYSTATIN [Concomitant]
     Active Substance: NYSTATIN
     Dosage: ORAL SUSPENSION 100000UNIT/ML USP
  13. PEGFILGRASTIM [Concomitant]
     Active Substance: PEGFILGRASTIM
  14. PROCHLORPERAZINE [Concomitant]
     Active Substance: PROCHLORPERAZINE
  15. RIZATRIPTAN [Concomitant]
     Active Substance: RIZATRIPTAN
  16. SEMAGLUTIDE [Concomitant]
     Active Substance: SEMAGLUTIDE
  17. TELMISARTAN [Concomitant]
     Active Substance: TELMISARTAN
  18. INSULIN DEGLUDEC [Concomitant]
     Active Substance: INSULIN DEGLUDEC
  19. VALACYCLOVIR HYDROCHLORIDE [Concomitant]
     Active Substance: VALACYCLOVIR HYDROCHLORIDE

REACTIONS (2)
  - Febrile neutropenia [Recovered/Resolved]
  - Influenza A virus test [Recovered/Resolved]
